FAERS Safety Report 6983332-2 (Version None)
Quarter: 2010Q3

REPORT INFORMATION
  Report Type: 
  Country: None (occurrence: None)
  Receive Date: 20100910
  Receipt Date: 20100824
  Transmission Date: 20110219
  Serious: Yes (Other)
  Sender: FDA-Public Use
  Company Number: 2010P1001063

PATIENT
  Age: 74 Year
  Sex: Male
  Weight: 83.9154 kg

DRUGS (1)
  1. WARFARIN SODIUM [Suspect]
     Indication: THROMBOSIS
     Dosage: 5 MG; QD; PO
     Route: 048
     Dates: start: 20080101, end: 20100823

REACTIONS (8)
  - CRYING [None]
  - HYPERHIDROSIS [None]
  - INCREASED TENDENCY TO BRUISE [None]
  - INJURY [None]
  - LIMB DISCOMFORT [None]
  - MYALGIA [None]
  - PAIN IN EXTREMITY [None]
  - THROMBOSIS [None]
